FAERS Safety Report 5204597-3 (Version None)
Quarter: 2007Q1

REPORT INFORMATION
  Report Type: 
  Country: None (occurrence: None)
  Receive Date: 20070110
  Receipt Date: 20060519
  Transmission Date: 20070707
  Serious: Yes (Hospitalization)
  Sender: FDA-Public Use
  Company Number: US-BRISTOL-MYERS SQUIBB COMPANY-13383492

PATIENT
  Age: 11 Year
  Sex: Male

DRUGS (2)
  1. ABILIFY [Suspect]
     Dosage: REDUCED TO 5 MG DAILY, THEN TO 2.5 MG DAILY, CURRENT STATUS UNKNOWN
     Route: 048
  2. COGENTIN [Suspect]

REACTIONS (1)
  - EXTRAPYRAMIDAL DISORDER [None]
